FAERS Safety Report 9852243 (Version 2)
Quarter: 2014Q2

REPORT INFORMATION
  Report Type: Spontaneous
  Country: US (occurrence: None)
  Receive Date: 20140127
  Receipt Date: 20140515
  Transmission Date: 20141212
  Serious: Yes (Hospitalization, Other)
  Sender: FDA-Public Use
  Company Number: ADR-2014-00101

PATIENT
  Sex: Male

DRUGS (3)
  1. BACLOFEN [Suspect]
     Indication: MUSCLE SPASTICITY
  2. DILAUDID [Suspect]
  3. CLONIDINE [Suspect]
     Route: 048

REACTIONS (8)
  - Drug withdrawal syndrome [None]
  - Pain [None]
  - Heart rate increased [None]
  - Blood pressure increased [None]
  - Neuropathy peripheral [None]
  - Adrenal insufficiency [None]
  - Decreased appetite [None]
  - Pain in extremity [None]
